FAERS Safety Report 10224125 (Version 3)
Quarter: 2014Q3

REPORT INFORMATION
  Report Type: Spontaneous
  Country: JP (occurrence: JP)
  Receive Date: 20140609
  Receipt Date: 20140708
  Transmission Date: 20150326
  Serious: Yes (Hospitalization)
  Sender: FDA-Public Use
  Company Number: PHHY2014JP069542

PATIENT
  Age: 81 Year
  Sex: Female

DRUGS (1)
  1. TASIGNA [Suspect]
     Active Substance: NILOTINIB
     Indication: CHRONIC MYELOID LEUKAEMIA
     Route: 048

REACTIONS (2)
  - Nervous system disorder [Recovering/Resolving]
  - Dysphagia [Recovering/Resolving]

NARRATIVE: CASE EVENT DATE: 20140527
